FAERS Safety Report 16089975 (Version 7)
Quarter: 2020Q4

REPORT INFORMATION
  Report Type: Spontaneous
  Country: US (occurrence: US)
  Receive Date: 20190319
  Receipt Date: 20201016
  Transmission Date: 20210113
  Serious: Yes (Hospitalization, Disabling, Other)
  Sender: FDA-Public Use
  Company Number: US-SA-2019SA069072

PATIENT

DRUGS (1)
  1. AUBAGIO [Suspect]
     Active Substance: TERIFLUNOMIDE
     Indication: MULTIPLE SCLEROSIS
     Dosage: 14 MG, QD
     Route: 048
     Dates: start: 20180110

REACTIONS (8)
  - Bedridden [Unknown]
  - Throat tightness [Unknown]
  - Speech disorder [Unknown]
  - Memory impairment [Unknown]
  - Product dose omission issue [Unknown]
  - Cardiac disorder [Recovering/Resolving]
  - Agitation [Unknown]
  - Myocardial infarction [Recovered/Resolved]

NARRATIVE: CASE EVENT DATE: 20190810
